FAERS Safety Report 7247011-9 (Version None)
Quarter: 2011Q1

REPORT INFORMATION
  Report Type: 
  Country: None (occurrence: None)
  Receive Date: 20110127
  Receipt Date: 20110125
  Transmission Date: 20110831
  Serious: Yes (Disabling, Other)
  Sender: FDA-Public Use
  Company Number: US-JNJFOC-20101208102

PATIENT
  Age: 28 Year

DRUGS (1)
  1. LEVAQUIN [Suspect]
     Indication: PRODUCT USED FOR UNKNOWN INDICATION
     Route: 065

REACTIONS (8)
  - DISABILITY [None]
  - PAIN [None]
  - TOXICITY TO VARIOUS AGENTS [None]
  - CONNECTIVE TISSUE DISORDER [None]
  - BEDRIDDEN [None]
  - MUSCULAR WEAKNESS [None]
  - TENDON INJURY [None]
  - NERVOUS SYSTEM DISORDER [None]
